FAERS Safety Report 5235532-X (Version None)
Quarter: 2007Q1

REPORT INFORMATION
  Report Type: 
  Country: None (occurrence: None)
  Receive Date: 20070208
  Receipt Date: 20070208
  Transmission Date: 20070707
  Serious: Yes (Disabling)
  Sender: FDA-Public Use
  Company Number: None

PATIENT
  Age: 33 Year
  Sex: Female

DRUGS (2)
  1. DEMEROL [Suspect]
     Indication: PAIN
     Dosage: 25-100 MG  Q3-4H  PRN   IM
     Route: 030
     Dates: start: 20060607, end: 20060611
  2. DEMEROL [Suspect]
     Indication: PAIN
     Dosage: 25- 50MG  Q3H PRN  IV
     Route: 042
     Dates: start: 20060615, end: 20060615

REACTIONS (15)
  - ANAEMIA [None]
  - APNOEA [None]
  - BRAIN OEDEMA [None]
  - CARDIOLIPIN ANTIBODY POSITIVE [None]
  - CENTRAL NERVOUS SYSTEM NEOPLASM [None]
  - CEREBRAL INFARCTION [None]
  - CEREBROVASCULAR ACCIDENT [None]
  - CEREBROVASCULAR ARTERIOVENOUS MALFORMATION [None]
  - COAGULATION FACTOR MUTATION [None]
  - CONVULSION [None]
  - HEART RATE INCREASED [None]
  - HYPERTENSION [None]
  - MOUTH HAEMORRHAGE [None]
  - OEDEMA [None]
  - POST PROCEDURAL COMPLICATION [None]
